FAERS Safety Report 19282502 (Version 2)
Quarter: 2023Q1

REPORT INFORMATION
  Report Type: Report from Study
  Country: US (occurrence: US)
  Receive Date: 20210520
  Receipt Date: 20230104
  Transmission Date: 20230418
  Serious: Yes (Other)
  Sender: FDA-Public Use
  Company Number: US-TAKEDA-2021TUS030247

PATIENT
  Sex: Female

DRUGS (2)
  1. VON WILLEBRAND FACTOR HUMAN [Suspect]
     Active Substance: VON WILLEBRAND FACTOR HUMAN
     Indication: Von Willebrand^s disease
     Dosage: UNK
     Route: 042
     Dates: start: 2018
  2. AMINOCAPROIC ACID [Concomitant]
     Active Substance: AMINOCAPROIC ACID
     Dosage: UNK
     Dates: start: 2018

REACTIONS (4)
  - Ear operation [Unknown]
  - Gingival bleeding [Unknown]
  - Contusion [Unknown]
  - COVID-19 [Recovered/Resolved]
